FAERS Safety Report 8798047 (Version 1)
Quarter: 2012Q4

REPORT INFORMATION
  Report Type: 
  Country: US (occurrence: US)
  Receive Date: 20120920
  Receipt Date: 20120920
  Transmission Date: 20130627
  Serious: Yes (Other)
  Sender: FDA-Public Use
  Company Number: US-ELI_LILLY_AND_COMPANY-US201209003018

PATIENT
  Sex: Female

DRUGS (3)
  1. CYMBALTA [Suspect]
     Indication: DEPRESSION
     Dosage: 30 mg, qd
     Dates: start: 201207
  2. CYMBALTA [Suspect]
     Dosage: 60 mg, qd
  3. LAMICTAL [Concomitant]
     Dosage: 200 mg, UNK

REACTIONS (1)
  - Stevens-Johnson syndrome [Recovered/Resolved]
